FAERS Safety Report 8346711-7 (Version None)
Quarter: 2012Q2

REPORT INFORMATION
  Report Type: 
  Country: None (occurrence: None)
  Receive Date: 20120509
  Receipt Date: 20120504
  Transmission Date: 20120825
  Serious: Yes (Other)
  Sender: FDA-Public Use
  Company Number: US-SANOFI-AVENTIS-2012SA032183

PATIENT
  Age: 16 Year
  Sex: Female

DRUGS (1)
  1. TAXOTERE [Suspect]
     Route: 042

REACTIONS (4)
  - ARTHRALGIA [None]
  - BURNING SENSATION [None]
  - ERYTHEMA [None]
  - ARTHRITIS [None]
